FAERS Safety Report 16731797 (Version 3)
Quarter: 2024Q4

REPORT INFORMATION
  Report Type: Spontaneous
  Country: CZ (occurrence: CZ)
  Receive Date: 20190822
  Receipt Date: 20241230
  Transmission Date: 20250115
  Serious: Yes (Other)
  Sender: MYLAN
  Company Number: CZ-NOVPHSZ-PHHY2019CZ060646

PATIENT
  Age: 61 Year
  Sex: Male

DRUGS (8)
  1. DOCETAXEL [Suspect]
     Active Substance: DOCETAXEL
     Indication: Prostate cancer
     Dosage: 1 DOSAGE FORM, CYCLE
     Route: 042
     Dates: start: 201404, end: 201404
  2. DOCETAXEL [Suspect]
     Active Substance: DOCETAXEL
     Dosage: 1 DOSAGE FORM, CYCLE
     Route: 042
     Dates: start: 201410, end: 201410
  3. DOCETAXEL [Suspect]
     Active Substance: DOCETAXEL
     Dosage: 1 DOSAGE FORM, CYCLE
     Route: 042
     Dates: start: 201503, end: 201503
  4. DOCETAXEL [Suspect]
     Active Substance: DOCETAXEL
     Dosage: 1 DOSAGE FORM, CYCLE
     Route: 042
     Dates: start: 201507, end: 201507
  5. BICALUTAMIDE [Suspect]
     Active Substance: BICALUTAMIDE
     Indication: Prostate cancer
     Dosage: UNK
     Route: 065
  6. GOSERELIN [Suspect]
     Active Substance: GOSERELIN
     Indication: Prostate cancer
     Dosage: UNK
     Route: 065
  7. CABAZITAXEL [Suspect]
     Active Substance: CABAZITAXEL
     Indication: Prostate cancer
     Dosage: 1 DOSAGE FORM, CYCLE
     Route: 042
     Dates: start: 201510, end: 201510
  8. CABAZITAXEL [Suspect]
     Active Substance: CABAZITAXEL
     Dosage: 1 DOSAGE FORM, CYCLE
     Route: 042
     Dates: start: 201604, end: 201604

REACTIONS (10)
  - Prostate cancer [Recovering/Resolving]
  - Metastases to bone [Recovering/Resolving]
  - Malignant neoplasm progression [Unknown]
  - Bone pain [Recovered/Resolved]
  - Prostatic specific antigen increased [Recovering/Resolving]
  - Pain [Recovering/Resolving]
  - Arthralgia [Recovering/Resolving]
  - Paraesthesia [Recovered/Resolved]
  - Asthenia [Recovered/Resolved]
  - Drug ineffective [Unknown]

NARRATIVE: CASE EVENT DATE: 20140101
